FAERS Safety Report 7184154-2 (Version None)
Quarter: 2010Q4

REPORT INFORMATION
  Report Type: 
  Country: None (occurrence: None)
  Receive Date: 20101222
  Receipt Date: 20101215
  Transmission Date: 20110411
  Serious: Yes (Death, Hospitalization)
  Sender: FDA-Public Use
  Company Number: DE-CELGENEUS-062-50794-10121776

PATIENT
  Age: 80 Year
  Sex: Male
  Weight: 82.7 kg

DRUGS (4)
  1. VIDAZA [Suspect]
     Route: 058
     Dates: start: 20101011, end: 20101015
  2. PLATELETS [Concomitant]
     Route: 051
     Dates: start: 20100628, end: 20101015
  3. RED BLOOD CELLS [Concomitant]
     Route: 051
     Dates: start: 20100628, end: 20101015
  4. MIRTAZAPIN [Concomitant]
     Indication: DEPRESSION
     Route: 048
     Dates: start: 20101012, end: 20101015

REACTIONS (1)
  - PNEUMONIA [None]
